FAERS Safety Report 10181065 (Version 2)
Quarter: 2014Q4

REPORT INFORMATION
  Report Type: Spontaneous
  Country: US (occurrence: US)
  Receive Date: 20140519
  Receipt Date: 20141006
  Transmission Date: 20150528
  Serious: No
  Sender: FDA-Public Use
  Company Number: US-AMGEN INC.-USASP2014025076

PATIENT
  Age: 72 Year
  Sex: Female
  Weight: 66.67 kg

DRUGS (5)
  1. BABY ASPIRIN [Concomitant]
     Active Substance: ASPIRIN
  2. PROLIA [Suspect]
     Active Substance: DENOSUMAB
     Indication: OSTEOPENIA
     Dosage: UNK UNK, Q6MO
     Route: 065
     Dates: start: 201304
  3. COQ10                              /00517201/ [Concomitant]
  4. CALCIUM [Concomitant]
     Active Substance: CALCIUM
  5. VITAMIN D                          /00107901/ [Concomitant]
     Active Substance: ERGOCALCIFEROL

REACTIONS (2)
  - Tooth disorder [Not Recovered/Not Resolved]
  - Toothache [Recovered/Resolved]
